FAERS Safety Report 5463649-3 (Version None)
Quarter: 2007Q3

REPORT INFORMATION
  Report Type: 
  Country: None (occurrence: None)
  Receive Date: 20070920
  Receipt Date: 20070917
  Transmission Date: 20080115
  Serious: Yes (Hospitalization, Other)
  Sender: FDA-Public Use
  Company Number: BE-MERCK-0708BEL00022

PATIENT
  Age: 79 Year
  Sex: Female
  Weight: 86 kg

DRUGS (5)
  1. ZOCOR [Suspect]
     Indication: HYPERCHOLESTEROLAEMIA
     Route: 048
     Dates: start: 19940101, end: 20030924
  2. ZOCOR [Suspect]
     Route: 048
     Dates: start: 20030925
  3. ISOTEN [Concomitant]
     Indication: HYPERTENSION
     Route: 048
     Dates: start: 20040401
  4. COVERSYL (PERINDOPRIL ERBUMINE) [Concomitant]
     Indication: HYPERTENSION
     Route: 048
     Dates: start: 20000501
  5. ALDACTONE [Concomitant]
     Indication: HYPERTENSION
     Route: 048
     Dates: start: 20040401

REACTIONS (1)
  - LEFT VENTRICULAR HYPERTROPHY [None]
